FAERS Safety Report 15567431 (Version 1)
Quarter: 2018Q4

REPORT INFORMATION
  Report Type: Report from Study
  Country: ES (occurrence: ES)
  Receive Date: 20181030
  Receipt Date: 20181030
  Transmission Date: 20190205
  Serious: Yes (Other)
  Sender: FDA-Public Use
  Company Number: ES-TEVA-2018-ES-969624

PATIENT
  Age: 54 Year
  Sex: Male

DRUGS (4)
  1. CELLCEPT [Suspect]
     Active Substance: MYCOPHENOLATE MOFETIL\MYCOPHENOLATE MOFETIL HYDROCHLORIDE
     Dosage: 500 MG CADA 12 H
     Route: 048
     Dates: start: 20180224, end: 20180313
  2. AMOXICILINA + ?CIDO CLAVUL?NICO [Suspect]
     Active Substance: AMOXICILLIN\CLAVULANIC ACID
     Route: 065
     Dates: start: 20180305, end: 20180313
  3. EVEROLIMUS (2916A) [Suspect]
     Active Substance: EVEROLIMUS
     Dosage: 3 MG CADA 12 HORAS
     Route: 048
     Dates: start: 20180224, end: 20180312
  4. PREDNISONA (886A) [Suspect]
     Active Substance: PREDNISONE
     Dosage: 5MG CADA 8 HORAS
     Route: 042
     Dates: start: 20180224, end: 20180313

REACTIONS (1)
  - Pancreatitis [Recovered/Resolved]

NARRATIVE: CASE EVENT DATE: 20180312
